FAERS Safety Report 24428212 (Version 1)
Quarter: 2024Q4

REPORT INFORMATION
  Report Type: Spontaneous
  Country: US (occurrence: US)
  Receive Date: 20241011
  Receipt Date: 20241011
  Transmission Date: 20250115
  Serious: No
  Sender: TEVA
  Company Number: US-TEVA-VS-3248035

PATIENT
  Age: 65 Year

DRUGS (1)
  1. VILAZODONE HYDROCHLORIDE [Suspect]
     Active Substance: VILAZODONE HYDROCHLORIDE
     Indication: Anxiety
     Route: 065

REACTIONS (3)
  - Product use in unapproved indication [Unknown]
  - Vision blurred [Unknown]
  - Nervousness [Unknown]
